FAERS Safety Report 26046412 (Version 1)
Quarter: 2025Q4

REPORT INFORMATION
  Report Type: Spontaneous
  Country: CN (occurrence: CN)
  Receive Date: 20251114
  Receipt Date: 20251114
  Transmission Date: 20260119
  Serious: Yes (Other)
  Sender: BAYER HEALTHCARE PHARMACEUTICALS INC.
  Company Number: CN-BAYER-2025A150930

PATIENT
  Age: 42 Year
  Sex: Female
  Weight: 50 kg

DRUGS (3)
  1. ULTRAVIST [Suspect]
     Active Substance: IOPROMIDE
     Indication: Computerised tomogram
     Dosage: 90 ML, ONCE
     Route: 042
     Dates: start: 20251104, end: 20251104
  2. ULTRAVIST [Suspect]
     Active Substance: IOPROMIDE
     Indication: Intestinal obstruction
  3. ULTRAVIST [Suspect]
     Active Substance: IOPROMIDE
     Indication: Abdominal distension

REACTIONS (11)
  - Contrast media allergy [Recovering/Resolving]
  - Dyspnoea [Recovering/Resolving]
  - Flushing [Recovering/Resolving]
  - Chills [Recovering/Resolving]
  - Seizure [Recovering/Resolving]
  - Blood pressure diastolic increased [None]
  - Dizziness [Recovering/Resolving]
  - Temperature intolerance [Recovering/Resolving]
  - Palpitations [Recovering/Resolving]
  - Asthenia [Recovering/Resolving]
  - Sensation of foreign body [Recovering/Resolving]

NARRATIVE: CASE EVENT DATE: 20251104
